FAERS Safety Report 8140512-0 (Version None)
Quarter: 2012Q1

REPORT INFORMATION
  Report Type: 
  Country: None (occurrence: None)
  Receive Date: 20120214
  Receipt Date: 20120214
  Transmission Date: 20120608
  Serious: Yes (Hospitalization)
  Sender: FDA-Public Use
  Company Number: None

PATIENT
  Age: 59 Year
  Sex: Male
  Weight: 64.2 kg

DRUGS (1)
  1. LISINOPRIL [Suspect]
     Indication: HYPERTENSION
     Dosage: 40 MG EVERY DAY PO
     Route: 048
     Dates: start: 20031112

REACTIONS (5)
  - OROPHARYNGEAL PAIN [None]
  - SUBCUTANEOUS EMPHYSEMA [None]
  - UPPER RESPIRATORY TRACT INFECTION [None]
  - ANGIOEDEMA [None]
  - PNEUMOMEDIASTINUM [None]
